FAERS Safety Report 24459170 (Version 1)
Quarter: 2024Q4

REPORT INFORMATION
  Report Type: Report from Study
  Country: ZA (occurrence: ZA)
  Receive Date: 20241018
  Receipt Date: 20241018
  Transmission Date: 20250115
  Serious: No
  Sender: ROCHE
  Company Number: ZA-ROCHE-3523339

PATIENT
  Age: 55 Year
  Sex: Female

DRUGS (1)
  1. RITUXIMAB [Suspect]
     Active Substance: RITUXIMAB
     Indication: Rheumatoid arthritis
     Dosage: NOW 1000MG 6 MONTHLY? FREQUENCY TEXT:14 DAYS
     Route: 041
     Dates: start: 20230628

REACTIONS (3)
  - White blood cell count increased [Unknown]
  - C-reactive protein increased [Unknown]
  - Off label use [Unknown]
